FAERS Safety Report 5346778-4 (Version None)
Quarter: 2007Q2

REPORT INFORMATION
  Report Type: 
  Country: None (occurrence: None)
  Receive Date: 20070605
  Receipt Date: 20070522
  Transmission Date: 20071010
  Serious: Yes (Hospitalization)
  Sender: FDA-Public Use
  Company Number: IT-ELI_LILLY_AND_COMPANY-IT200705006760

PATIENT
  Age: 59 Year
  Sex: Female

DRUGS (5)
  1. ZYPREXA [Suspect]
     Indication: BIPOLAR DISORDER
     Dosage: 5 MG, DAILY (1/D)
     Route: 048
     Dates: start: 20050101
  2. CARBOLITHIUM [Concomitant]
     Indication: BIPOLAR DISORDER
     Dosage: 300 MG, DAILY (1/D)
     Route: 048
     Dates: start: 19970101
  3. CLOMIPRAMINE HYDROCHLORIDE [Concomitant]
     Dosage: 150 MG, DAILY (1/D)
     Dates: start: 20040101
  4. QUINAZIL [Concomitant]
     Dosage: 20 MG, UNK
     Route: 048
     Dates: start: 20040101
  5. EUTIROX [Concomitant]
     Dates: start: 20040101

REACTIONS (3)
  - INTERSTITIAL LUNG DISEASE [None]
  - POISONING [None]
  - SOPOR [None]
